FAERS Safety Report 18690597 (Version 2)
Quarter: 2021Q1

REPORT INFORMATION
  Report Type: Spontaneous
  Country: JP (occurrence: JP)
  Receive Date: 20210101
  Receipt Date: 20210201
  Transmission Date: 20210419
  Serious: Yes (Hospitalization)
  Sender: FDA-Public Use
  Company Number: JP-AMGEN-JPNSP2020202339

PATIENT
  Sex: Male

DRUGS (1)
  1. VECTIBIX [Suspect]
     Active Substance: PANITUMUMAB
     Indication: COLON CANCER
     Dosage: UNK
     Route: 041

REACTIONS (4)
  - Fall [Unknown]
  - Skin disorder [Recovered/Resolved]
  - Condition aggravated [Recovered/Resolved]
  - Fracture [Unknown]
